FAERS Safety Report 23894298 (Version 3)
Quarter: 2024Q2

REPORT INFORMATION
  Report Type: Spontaneous
  Country: IN (occurrence: IN)
  Receive Date: 20240524
  Receipt Date: 20240529
  Transmission Date: 20240715
  Serious: Yes (Hospitalization)
  Sender: FDA-Public Use
  Company Number: IN-MSNLABS-2024MSNLIT01132

PATIENT

DRUGS (5)
  1. LEVETIRACETAM [Suspect]
     Active Substance: LEVETIRACETAM
     Indication: Epilepsy
     Dosage: 250 MG TWICE A DAY
     Route: 065
  2. LEVETIRACETAM [Suspect]
     Active Substance: LEVETIRACETAM
     Dosage: DOSE WAS INCREASED TO 500 MG THRICE A DAY
     Route: 065
  3. PHENOBARBITAL [Concomitant]
     Active Substance: PHENOBARBITAL
     Indication: Epilepsy
     Dosage: 60 MG AT BEDTIME
     Route: 065
  4. CARBAMAZEPINE [Concomitant]
     Active Substance: CARBAMAZEPINE
     Dosage: 600 MG TWICE A DAY
     Route: 065
  5. CLOBAZAM [Concomitant]
     Active Substance: CLOBAZAM
     Dosage: 5 MG TWICE A DAY
     Route: 065

REACTIONS (4)
  - Sleep disorder [Recovered/Resolved]
  - Crying [Recovered/Resolved]
  - Behaviour disorder [Recovered/Resolved]
  - Aggression [Recovered/Resolved]
